FAERS Safety Report 8964459 (Version 1)
Quarter: 2012Q4

REPORT INFORMATION
  Report Type: 
  Country: US (occurrence: US)
  Receive Date: 20121214
  Receipt Date: 20121214
  Transmission Date: 20130627
  Serious: No
  Sender: FDA-Public Use
  Company Number: US-GLAXOSMITHKLINE-A0995289A

PATIENT
  Sex: Male

DRUGS (4)
  1. AVODART [Suspect]
     Indication: BENIGN PROSTATIC HYPERPLASIA
     Dosage: 1CAP Three times per week
     Route: 048
     Dates: start: 2009
  2. SIMVASTATIN [Concomitant]
  3. BLOOD PRESSURE MEDICATION [Concomitant]
  4. THYROID MEDICATION [Concomitant]

REACTIONS (1)
  - Abdominal pain upper [Recovered/Resolved]
